FAERS Safety Report 11360558 (Version 1)
Quarter: 2015Q3

REPORT INFORMATION
  Report Type: Report from Study
  Country: US (occurrence: US)
  Receive Date: 20150810
  Receipt Date: 20150810
  Transmission Date: 20151125
  Serious: No
  Sender: FDA-Public Use
  Company Number: PHEH2015US004345

PATIENT
  Sex: Female
  Weight: 71.2 kg

DRUGS (4)
  1. EXTAVIA [Suspect]
     Active Substance: INTERFERON BETA-1B
     Indication: MULTIPLE SCLEROSIS
     Dosage: 0.25 ML, QOD (FOR WEEK 1 TO 2)
     Route: 058
     Dates: start: 20150225
  2. EXTAVIA [Suspect]
     Active Substance: INTERFERON BETA-1B
     Dosage: 1 ML, QOD (FOR WEEK 7 AND AFTERWARDS)
     Route: 058
  3. EXTAVIA [Suspect]
     Active Substance: INTERFERON BETA-1B
     Dosage: 0.5 ML, QOD (FOR WEEK 3 TO 4)
     Route: 058
  4. EXTAVIA [Suspect]
     Active Substance: INTERFERON BETA-1B
     Dosage: 0.75 ML, QOD (FOR WEEK 5 TO 6)
     Route: 058

REACTIONS (6)
  - Injection site pain [Unknown]
  - Pain [Unknown]
  - Joint injury [Unknown]
  - Pain in extremity [Unknown]
  - Injection site erythema [Not Recovered/Not Resolved]
  - Injection site bruising [Unknown]
